FAERS Safety Report 25915347 (Version 1)
Quarter: 2025Q4

REPORT INFORMATION
  Report Type: Spontaneous
  Country: US (occurrence: US)
  Receive Date: 20251013
  Receipt Date: 20251013
  Transmission Date: 20260117
  Serious: No
  Sender: ANI
  Company Number: US-ANIPHARMA-2025-US-033191

PATIENT
  Age: 60 Year
  Sex: Male

DRUGS (1)
  1. CORTICOTROPIN [Suspect]
     Active Substance: CORTICOTROPIN
     Indication: Nephrotic syndrome
     Dosage: 1 INJECTION BID; DOSE UNSPECIFIED
     Route: 058
     Dates: start: 202503, end: 202507

REACTIONS (4)
  - Vision blurred [Unknown]
  - Blood glucose increased [Unknown]
  - Blood pressure increased [Unknown]
  - Chest discomfort [Unknown]

NARRATIVE: CASE EVENT DATE: 20250301
